FAERS Safety Report 4401802-8 (Version None)
Quarter: 2004Q3

REPORT INFORMATION
  Report Type: 
  Country: None (occurrence: None)
  Receive Date: 20040720
  Receipt Date: 20040712
  Transmission Date: 20050211
  Serious: Yes (Hospitalization)
  Sender: FDA-Public Use
  Company Number: PHNU2004DE02464

PATIENT
  Sex: Female

DRUGS (9)
  1. SANDIMMUNE [Suspect]
     Indication: BONE MARROW TRANSPLANT
     Dosage: UNK
     Route: 065
     Dates: start: 20020101, end: 20040101
  2. SANDIMMUNE [Suspect]
     Dosage: DOSAGE INCREASED
     Route: 065
     Dates: start: 20040101
  3. PREDNISONE [Concomitant]
     Indication: IMMUNOSUPPRESSION
  4. TAZOBAC [Concomitant]
  5. OMEPRAZOLE [Concomitant]
  6. URSO FALK [Concomitant]
  7. ESIDRIX [Concomitant]
  8. AMPHO-MORONAL [Concomitant]
  9. ENOXAPARIN SODIUM [Concomitant]

REACTIONS (5)
  - BLOOD CREATINE PHOSPHOKINASE INCREASED [None]
  - BLOOD CREATINE PHOSPHOKINASE MB INCREASED [None]
  - MUSCULOSKELETAL PAIN [None]
  - MYOPATHY [None]
  - PAIN [None]
